FAERS Safety Report 12730936 (Version 4)
Quarter: 2017Q1

REPORT INFORMATION
  Report Type: Spontaneous
  Country: US (occurrence: US)
  Receive Date: 20160911
  Receipt Date: 20170309
  Transmission Date: 20170428
  Serious: No
  Sender: FDA-Public Use
  Company Number: US-TEVA-683935USA

PATIENT
  Sex: Female
  Weight: 75.57 kg

DRUGS (2)
  1. PROAIR HFA [Suspect]
     Active Substance: ALBUTEROL SULFATE
     Indication: ASTHMA
  2. PROAIR HFA [Suspect]
     Active Substance: ALBUTEROL SULFATE
     Indication: BRONCHITIS CHRONIC
     Dates: start: 2012

REACTIONS (7)
  - Product physical issue [Unknown]
  - Drug ineffective [Not Recovered/Not Resolved]
  - Tremor [Unknown]
  - Tremor [Not Recovered/Not Resolved]
  - Skin atrophy [Unknown]
  - Vocal cord thickening [Unknown]
  - Speech disorder [Not Recovered/Not Resolved]
